FAERS Safety Report 22096989 (Version 2)
Quarter: 2023Q1

REPORT INFORMATION
  Report Type: Spontaneous
  Country: US (occurrence: US)
  Receive Date: 20230315
  Receipt Date: 20230330
  Transmission Date: 20230418
  Serious: No
  Sender: FDA-Public Use
  Company Number: US-PFIZER INC-202300107004

PATIENT
  Age: 12 Year
  Sex: Male
  Weight: 28.49 kg

DRUGS (1)
  1. GENOTROPIN [Suspect]
     Active Substance: SOMATROPIN
     Indication: Growth disorder
     Dosage: UNK

REACTIONS (4)
  - Device use issue [Unknown]
  - Wrong technique in device usage process [Unknown]
  - Product prescribing error [Unknown]
  - Device leakage [Unknown]
